FAERS Safety Report 7210099-5 (Version None)
Quarter: 2011Q1

REPORT INFORMATION
  Report Type: 
  Country: None (occurrence: None)
  Receive Date: 20110105
  Receipt Date: 20101111
  Transmission Date: 20110831
  Serious: Yes (Life-Threatening, Hospitalization)
  Sender: FDA-Public Use
  Company Number: US-BAYER-201014053NA

PATIENT
  Sex: Female
  Weight: 62.273 kg

DRUGS (13)
  1. BENICAR [Concomitant]
     Dosage: 40 MG (DAILY DOSE), ,
  2. LANTUS [Concomitant]
     Dosage: 18 UNITS
  3. REGLAN [Concomitant]
     Indication: RENAL FAILURE
  4. YASMIN [Suspect]
     Indication: ACNE
  5. HUMULIN N [Concomitant]
  6. YASMIN [Suspect]
     Indication: CONTRACEPTION
     Route: 048
     Dates: start: 20070101, end: 20070601
  7. YAZ [Suspect]
     Indication: CONTRACEPTION
  8. IBUPROFEN [Concomitant]
     Dosage: USED VERY RARELY
  9. YAZ [Suspect]
     Indication: ACNE
     Route: 048
     Dates: start: 20050101, end: 20060101
  10. HUMULIN R [Concomitant]
  11. PREDNISONE [Concomitant]
  12. ATENOLOL [Concomitant]
     Dosage: 25 MG IN THE MORNING AND 25 MG AT BEDTIME
  13. NOVOLOG [Concomitant]
     Dosage: SLIDING SCALE

REACTIONS (1)
  - RENAL FAILURE [None]
